FAERS Safety Report 25718553 (Version 3)
Quarter: 2025Q4

REPORT INFORMATION
  Report Type: Report from Study
  Country: US (occurrence: US)
  Receive Date: 20250823
  Receipt Date: 20251126
  Transmission Date: 20260118
  Serious: Yes (Other)
  Sender: ABBVIE
  Company Number: US-ABBVIE-6427748

PATIENT
  Age: 63 Year
  Sex: Female

DRUGS (1)
  1. UBRELVY [Suspect]
     Active Substance: UBROGEPANT
     Indication: Migraine
     Dosage: 8 TIMES A MONTH
     Route: 048
     Dates: start: 2020

REACTIONS (1)
  - Myocardial infarction [Recovered/Resolved]

NARRATIVE: CASE EVENT DATE: 20211201
